FAERS Safety Report 8704798 (Version 2)
Quarter: 2012Q4

REPORT INFORMATION
  Report Type: 
  Country: US (occurrence: US)
  Receive Date: 20120803
  Receipt Date: 20121105
  Transmission Date: 20130627
  Serious: No
  Sender: FDA-Public Use
  Company Number: US-ELI_LILLY_AND_COMPANY-US201207007322

PATIENT
  Sex: Female
  Weight: 121.9 kg

DRUGS (13)
  1. CYMBALTA [Suspect]
     Indication: DEPRESSION
     Dosage: 40 mg, qd
     Dates: start: 2006, end: 20070109
  2. CYMBALTA [Suspect]
     Dosage: 60 mg, qd
     Route: 048
     Dates: start: 20070109, end: 20080205
  3. ZYPREXA [Concomitant]
     Dosage: 10 mg, qd
     Dates: end: 20060831
  4. SKELAXIN [Concomitant]
     Dosage: 800 mg, tid
     Dates: end: 20060831
  5. MS CONTIN [Concomitant]
     Dosage: 30 mg, bid
  6. AMBIEN [Concomitant]
     Dosage: 12.5 mg, each evening
  7. BACLOFEN [Concomitant]
     Dosage: UNK, prn
  8. HYDROCODONE [Concomitant]
     Dosage: UNK, tid
  9. COMBIVENT [Concomitant]
     Dosage: UNK UNK, qid
     Route: 055
  10. PROMETHAZINE [Concomitant]
     Indication: NAUSEA
     Dosage: 25 mg, prn
  11. ZOFRAN [Concomitant]
     Dosage: 4 mg, prn
  12. DICYCLOMINE [Concomitant]
     Dosage: 10 mg, prn
  13. RANITIDINE [Concomitant]
     Dosage: 150 mg, bid
     Dates: start: 20071018, end: 20080107

REACTIONS (7)
  - Hepatic steatosis [Not Recovered/Not Resolved]
  - Lip blister [Recovering/Resolving]
  - Vomiting [Recovering/Resolving]
  - Diarrhoea [Recovering/Resolving]
  - Hyperhidrosis [Unknown]
  - Lip exfoliation [Not Recovered/Not Resolved]
  - Skin disorder [Not Recovered/Not Resolved]
